FAERS Safety Report 12234764 (Version 1)
Quarter: 2016Q2

REPORT INFORMATION
  Report Type: Report from Study
  Country: US (occurrence: US)
  Receive Date: 20160404
  Receipt Date: 20160404
  Transmission Date: 20160815
  Serious: Yes (Other)
  Sender: FDA-Public Use
  Company Number: US-MDT-ADR-2016-00619

PATIENT
  Age: 55 Year
  Sex: Female

DRUGS (3)
  1. COMPOUNDED BACLOFEN [Suspect]
     Active Substance: BACLOFEN
     Indication: PAIN
     Dosage: 1,218.1MCG/DAY
     Route: 037
  2. DILAUDID [Suspect]
     Active Substance: HYDROMORPHONE HYDROCHLORIDE
     Dosage: 3.0452MG/DAY
     Route: 037
  3. BUPIVACAINE. [Suspect]
     Active Substance: BUPIVACAINE
     Dosage: 6.090MG/DAY
     Route: 037

REACTIONS (3)
  - Muscle spasticity [Recovered/Resolved with Sequelae]
  - Pain [Recovered/Resolved with Sequelae]
  - No therapeutic response [Recovered/Resolved with Sequelae]

NARRATIVE: CASE EVENT DATE: 20160107
